FAERS Safety Report 19179817 (Version 1)
Quarter: 2021Q2

REPORT INFORMATION
  Report Type: Spontaneous
  Country: NL (occurrence: NL)
  Receive Date: 20210426
  Receipt Date: 20210426
  Transmission Date: 20210717
  Serious: Yes (Disabling)
  Sender: FDA-Public Use
  Company Number: NL-ORGANON-O2104NLD001491

PATIENT

DRUGS (2)
  1. SINEMET CR [Suspect]
     Active Substance: CARBIDOPA\LEVODOPA
     Indication: PARKINSONISM
     Dosage: 4XDD 1ST
     Route: 064
     Dates: start: 201303
  2. FOLIUMZUUR [Concomitant]
     Active Substance: FOLIC ACID
     Dosage: 0.4MG 2 MONTHS BEFORE AND UP UNTIL 4 MONTHS DURING PREGNANCY

REACTIONS (2)
  - Maternal exposure during pregnancy [Unknown]
  - Spina bifida occulta [Not Recovered/Not Resolved]
